FAERS Safety Report 9748495 (Version 1)
Quarter: 2013Q4

REPORT INFORMATION
  Report Type: Spontaneous
  Country: US (occurrence: None)
  Receive Date: 20131209
  Receipt Date: 20131209
  Transmission Date: 20140711
  Serious: Yes (Life-Threatening, Other)
  Sender: FDA-Public Use
  Company Number: 001636171A

PATIENT
  Age: 52 Year
  Sex: Female

DRUGS (3)
  1. MEANINGFUL BEAUTY ANTIOXIDANT DAY CREME SPF 20 [Suspect]
     Dosage: ONCE DAILY, DERMAL
     Dates: start: 20130917, end: 20131121
  2. SKIN BRIGHTENING DECOLLETE AND NECK TREATMENT SPF 15 [Suspect]
     Dosage: ONCE DAILY DERMAL
  3. SYMBICORT [Concomitant]

REACTIONS (4)
  - Urticaria [None]
  - Chest discomfort [None]
  - Dyspnoea [None]
  - Wheezing [None]
